FAERS Safety Report 4290315-2 (Version None)
Quarter: 2004Q1

REPORT INFORMATION
  Report Type: 
  Country: None (occurrence: None)
  Receive Date: 20040209
  Receipt Date: 20040127
  Transmission Date: 20041129
  Serious: Yes (Other)
  Sender: FDA-Public Use
  Company Number: US-JNJFOC-20031200386

PATIENT
  Age: 55 Year
  Sex: Female

DRUGS (5)
  1. REMICADE [Suspect]
     Indication: RHEUMATOID ARTHRITIS
     Dosage: INTRAVENOUS
     Route: 042
     Dates: start: 20010101
  2. REMICADE [Suspect]
     Indication: RHEUMATOID ARTHRITIS
     Dosage: INTRAVENOUS
     Route: 042
     Dates: start: 20031115
  3. PREDNISONE [Suspect]
     Indication: DRUG USE FOR UNKNOWN INDICATION
  4. ETHAMBUTOL HCL [Suspect]
  5. RIFAMPICIN [Suspect]
     Indication: ATYPICAL MYCOBACTERIAL INFECTION

REACTIONS (11)
  - ATYPICAL MYCOBACTERIAL INFECTION [None]
  - BRONCHOPULMONARY ASPERGILLOSIS [None]
  - CHEST DISCOMFORT [None]
  - ENZYME ABNORMALITY [None]
  - FALSE POSITIVE LABORATORY RESULT [None]
  - HEPATITIS [None]
  - MUSCULOSKELETAL DISCOMFORT [None]
  - NASAL NEOPLASM [None]
  - NEUROPATHY [None]
  - RHEUMATOID ARTHRITIS [None]
  - WEIGHT INCREASED [None]
